FAERS Safety Report 4653355-7 (Version None)
Quarter: 2005Q2

REPORT INFORMATION
  Report Type: 
  Country: None (occurrence: None)
  Receive Date: 20050503
  Receipt Date: 20050222
  Transmission Date: 20051028
  Serious: Yes (Death)
  Sender: FDA-Public Use
  Company Number: 10637

PATIENT

DRUGS (3)
  1. METHOTREXATE [Suspect]
  2. DOXORUBICIN HCL [Suspect]
  3. VINCRISTINE [Suspect]

REACTIONS (4)
  - CONGENITAL URETHRAL ANOMALY [None]
  - DRUG EXPOSURE DURING PREGNANCY [None]
  - RENAL FAILURE NEONATAL [None]
  - TRANSMISSION OF DRUG VIA SEMEN [None]
